FAERS Safety Report 20681113 (Version 3)
Quarter: 2022Q2

REPORT INFORMATION
  Report Type: Report from Study
  Country: US (occurrence: US)
  Receive Date: 20220406
  Receipt Date: 20220609
  Transmission Date: 20220720
  Serious: No
  Sender: FDA-Public Use
  Company Number: US-KYOWAKIRIN-2022BKK004685

PATIENT

DRUGS (4)
  1. CRYSVITA [Suspect]
     Active Substance: BUROSUMAB-TWZA
     Indication: Hereditary hypophosphataemic rickets
     Dosage: 70 MG (COMBINED STRENGTH OD 10 MG/ML AND 30 MG/ML), 1X/4 WEEKS
     Route: 058
     Dates: start: 20220304, end: 20220304
  2. CRYSVITA [Suspect]
     Active Substance: BUROSUMAB-TWZA
     Dosage: 40 MG  (COMBINED STRENGTH OD 10 MG/ML AND 30 MG/ML), 1X/4 WEEKS
     Route: 058
     Dates: start: 2022
  3. CRYSVITA [Suspect]
     Active Substance: BUROSUMAB-TWZA
     Indication: Hereditary hypophosphataemic rickets
     Dosage: 70 MG  (COMBINED STRENGTH OD 10 MG/ML AND 30 MG/ML), 1X/4 WEEKS
     Route: 058
     Dates: start: 20220304, end: 20220304
  4. CRYSVITA [Suspect]
     Active Substance: BUROSUMAB-TWZA
     Dosage: 40 MG  (COMBINED STRENGTH OD 10 MG/ML AND 30 MG/ML), 1X/4 WEEKS
     Route: 058
     Dates: start: 2022

REACTIONS (1)
  - Blood calcium increased [Recovered/Resolved]

NARRATIVE: CASE EVENT DATE: 20220318
